APPROVED DRUG PRODUCT: CELECOXIB
Active Ingredient: CELECOXIB
Strength: 200MG
Dosage Form/Route: CAPSULE;ORAL
Application: A205938 | Product #003
Applicant: ZYDUS PHARMACEUTICALS USA INC
Approved: Jul 14, 2025 | RLD: No | RS: No | Type: DISCN